FAERS Safety Report 15933007 (Version 3)
Quarter: 2019Q3

REPORT INFORMATION
  Report Type: Report from Study
  Country: ZA (occurrence: ZA)
  Receive Date: 20190207
  Receipt Date: 20190802
  Transmission Date: 20191004
  Serious: Yes (Life-Threatening)
  Sender: FDA-Public Use
  Company Number: ZA-SA-2019SA032066

PATIENT
  Age: 70 Year
  Sex: Male

DRUGS (6)
  1. NO STUDY DRUG GIVEN [Suspect]
     Active Substance: INVESTIGATIONAL PRODUCT
     Dosage: UNK
  2. SPIRACTIN [SPIRONOLACTONE] [Concomitant]
     Active Substance: SPIRONOLACTONE
     Dosage: 25 MG, QD (BEFORE BREAKFAST)
     Dates: start: 20030201
  3. CARDICOR [Concomitant]
     Active Substance: BISOPROLOL
     Dosage: 2.5 MG, QD (BEFORE BREAKFAST)
     Dates: start: 20030201
  4. TOUJEO [Suspect]
     Active Substance: INSULIN GLARGINE
     Dosage: 5 U, HS (BED TIME)
     Route: 065
     Dates: start: 20190129
  5. RAMIPRIL HEXAL [Concomitant]
     Active Substance: RAMIPRIL
     Dosage: 5 MG, QD (AFTER BREAKFAST)
     Dates: start: 20030201
  6. LASIX [Concomitant]
     Active Substance: FUROSEMIDE
     Dosage: 40 MG, BID (BEFORE BREAKFAST AND AFTER BREAKFAST)
     Dates: start: 20190401

REACTIONS (5)
  - Injection site mass [Recovered/Resolved]
  - Unevaluable event [Recovered/Resolved]
  - Heart rate increased [Recovered/Resolved]
  - Palpitations [Recovered/Resolved]
  - Hypoglycaemia [Unknown]

NARRATIVE: CASE EVENT DATE: 20190130
